FAERS Safety Report 6310746-6 (Version None)
Quarter: 2009Q3

REPORT INFORMATION
  Report Type: 
  Country: None (occurrence: None)
  Receive Date: 20090812
  Receipt Date: 20080714
  Transmission Date: 20100115
  Serious: Yes (Other)
  Sender: FDA-Public Use
  Company Number: 575578

PATIENT
  Age: 64 Year
  Sex: Male
  Weight: 90.7 kg

DRUGS (16)
  1. CELLCEPT [Suspect]
     Indication: SYSTEMIC LUPUS ERYTHEMATOSUS
     Dosage: 1500 MG 2 PER DAY
     Dates: start: 20070601
  2. LISINOPRIL [Suspect]
     Indication: BLOOD PRESSURE INCREASED
  3. METOPROLOL (METOPROLOL) [Suspect]
     Indication: BLOOD PRESSURE INCREASED
  4. PLAQUENIL [Concomitant]
  5. PRILOSEC [Concomitant]
  6. CALCIUM (CALCIUM) [Concomitant]
  7. POTASSIUM (POTASSIUM) [Concomitant]
  8. REQUIP [Concomitant]
  9. RESTASIS (CYCLOSPORINE) [Concomitant]
  10. CRESTOR [Concomitant]
  11. FOSAMAX [Concomitant]
  12. FISH OIL (FATTY ACIDS NOS) [Concomitant]
  13. ASPIRIN [Concomitant]
  14. MULTIVITAMIN [Concomitant]
  15. DAPSONE [Concomitant]
  16. PREDNISONE TAB [Concomitant]

REACTIONS (2)
  - LOSS OF CONSCIOUSNESS [None]
  - PROGRESSIVE MULTIFOCAL LEUKOENCEPHALOPATHY [None]
